FAERS Safety Report 15112998 (Version 1)
Quarter: 2018Q3

REPORT INFORMATION
  Report Type: Spontaneous
  Country: DE (occurrence: DE)
  Receive Date: 20180706
  Receipt Date: 20180706
  Transmission Date: 20181010
  Serious: Yes (Other)
  Sender: FDA-Public Use
  Company Number: DE-SUN PHARMACEUTICAL INDUSTRIES LTD-2018RR-177544

PATIENT
  Age: 51 Year
  Sex: Female
  Weight: 56 kg

DRUGS (1)
  1. CETIRIZIN [Suspect]
     Active Substance: CETIRIZINE HYDROCHLORIDE
     Indication: CONJUNCTIVITIS ALLERGIC
     Dosage: 1 DF, UNK
     Route: 048
     Dates: start: 20180419, end: 20180520

REACTIONS (5)
  - Encopresis [Recovered/Resolved]
  - Paraesthesia [Recovered/Resolved]
  - Vision blurred [Recovered/Resolved]
  - Syncope [Recovered/Resolved]
  - Enuresis [Recovered/Resolved]

NARRATIVE: CASE EVENT DATE: 20180507
